FAERS Safety Report 14814340 (Version 2)
Quarter: 2018Q3

REPORT INFORMATION
  Report Type: Spontaneous
  Country: US (occurrence: US)
  Receive Date: 20180426
  Receipt Date: 20180730
  Transmission Date: 20181010
  Serious: Yes (Hospitalization)
  Sender: FDA-Public Use
  Company Number: US-NOVOPROD-596777

PATIENT
  Age: 72 Year
  Sex: Male

DRUGS (1)
  1. NOVOLIN R [Suspect]
     Active Substance: INSULIN HUMAN
     Indication: PRODUCT USED FOR UNKNOWN INDICATION
     Dosage: 100 U, BID
     Route: 058
     Dates: start: 2015, end: 201601

REACTIONS (4)
  - Lower limb fracture [Recovered/Resolved]
  - Road traffic accident [Recovered/Resolved]
  - Weight increased [Recovering/Resolving]
  - Seborrhoea [Recovered/Resolved]

NARRATIVE: CASE EVENT DATE: 201601
